FAERS Safety Report 4388233-4 (Version None)
Quarter: 2004Q2

REPORT INFORMATION
  Report Type: 
  Country: None (occurrence: None)
  Receive Date: 20040625
  Receipt Date: 20040610
  Transmission Date: 20050107
  Serious: Yes (Hospitalization, Other)
  Sender: FDA-Public Use
  Company Number: USA-2004-0013338

PATIENT
  Age: 51 Year
  Sex: Female
  Weight: 96.1 kg

DRUGS (9)
  1. OXYCONTIN [Suspect]
     Indication: PAIN
     Dosage: 20 MG, Q12H, UNKNOWN
     Route: 065
     Dates: start: 20031209
  2. AMBIEN [Concomitant]
  3. INDERAL [Concomitant]
  4. KCL TAB [Concomitant]
  5. NEXIUM [Concomitant]
  6. PAXIL [Concomitant]
  7. HYDROCHLOROTHIAZIDE [Concomitant]
  8. LIPITOR [Concomitant]
  9. PREMARIN [Concomitant]

REACTIONS (10)
  - AGGRESSION [None]
  - BLOOD POTASSIUM DECREASED [None]
  - DRUG ABUSER [None]
  - DRUG WITHDRAWAL SYNDROME [None]
  - HALLUCINATION [None]
  - INSOMNIA [None]
  - MENTAL STATUS CHANGES [None]
  - RESTLESSNESS [None]
  - SELF-MEDICATION [None]
  - TREATMENT NONCOMPLIANCE [None]
